FAERS Safety Report 26086163 (Version 1)
Quarter: 2025Q4

REPORT INFORMATION
  Report Type: Spontaneous
  Country: CA (occurrence: CA)
  Receive Date: 20251125
  Receipt Date: 20251125
  Transmission Date: 20260117
  Serious: Yes (Other)
  Sender: TEVA
  Company Number: CA-TEVA-VS-3396089

PATIENT
  Age: 40 Year
  Sex: Female
  Weight: 86 kg

DRUGS (8)
  1. RISPERIDONE [Suspect]
     Active Substance: RISPERIDONE
     Indication: Product used for unknown indication
     Dosage: DOSE FORM: NOT SPECIFIED
     Route: 065
  2. LEVOTHYROXINE [Suspect]
     Active Substance: LEVOTHYROXINE
     Indication: Thyroid disorder
     Route: 065
  3. LEVOTHYROXINE SODIUM [Concomitant]
     Active Substance: LEVOTHYROXINE SODIUM
     Indication: Product used for unknown indication
     Dosage: DOSE FORM: NOT SPECIFIED
     Route: 065
  4. LEVOTHYROXINE SODIUM [Concomitant]
     Active Substance: LEVOTHYROXINE SODIUM
     Indication: Product used for unknown indication
     Route: 065
  5. ABILIFY MAINTENA [Suspect]
     Active Substance: ARIPIPRAZOLE
     Indication: Schizoaffective disorder
     Route: 065
  6. ABILIFY MAINTENA [Suspect]
     Active Substance: ARIPIPRAZOLE
     Indication: Schizoaffective disorder
     Dosage: DOSE FORM: KIT
     Route: 065
  7. SYNTHROID [Suspect]
     Active Substance: LEVOTHYROXINE SODIUM
     Indication: Thyroid disorder
     Dosage: DOSE FORM: NOT SPECIFIED
     Route: 065
  8. SYNTHROID [Suspect]
     Active Substance: LEVOTHYROXINE SODIUM
     Indication: Thyroid disorder
     Route: 065

REACTIONS (24)
  - Hallucination, auditory [Unknown]
  - Burning sensation [Unknown]
  - Product use in unapproved indication [Unknown]
  - Paraesthesia [Unknown]
  - Fear of death [Unknown]
  - Insomnia [Unknown]
  - Nervousness [Unknown]
  - Brain fog [Unknown]
  - Ear discomfort [Unknown]
  - Pyrexia [Unknown]
  - Somnolence [Unknown]
  - Victim of abuse [Unknown]
  - Malaise [Unknown]
  - Nasopharyngitis [Unknown]
  - Off label use [Unknown]
  - Chest discomfort [Unknown]
  - Flushing [Unknown]
  - Weight increased [Unknown]
  - Fatigue [Unknown]
  - Lethargy [Unknown]
  - Anxiety [Unknown]
  - Limb discomfort [Unknown]
  - Feeling abnormal [Unknown]
  - Headache [Unknown]
